FAERS Safety Report 7074373-8 (Version None)
Quarter: 2010Q4

REPORT INFORMATION
  Report Type: 
  Country: None (occurrence: None)
  Receive Date: 20101029
  Receipt Date: 20101021
  Transmission Date: 20110411
  Serious: Yes (Other)
  Sender: FDA-Public Use
  Company Number: CH-BRISTOL-MYERS SQUIBB COMPANY-15357742

PATIENT
  Age: 55 Year
  Sex: Male

DRUGS (3)
  1. ERBITUX [Suspect]
     Indication: HEAD AND NECK CANCER
     Dates: start: 20100215, end: 20100901
  2. CARBOPLATIN [Concomitant]
     Dates: start: 20100215, end: 20100601
  3. FLUOROURACIL [Concomitant]
     Dates: start: 20100215, end: 20100601

REACTIONS (1)
  - HEPATIC FAILURE [None]
